FAERS Safety Report 8402929-6 (Version None)
Quarter: 2012Q2

REPORT INFORMATION
  Report Type: 
  Country: None (occurrence: None)
  Receive Date: 20120601
  Receipt Date: 20120524
  Transmission Date: 20120825
  Serious: Yes (Death, Hospitalization)
  Sender: FDA-Public Use
  Company Number: US-GLAXOSMITHKLINE-A0953923A

PATIENT
  Age: 67 Year
  Sex: Male
  Weight: 104.5 kg

DRUGS (4)
  1. FLOMAX [Concomitant]
  2. PRILOSEC [Concomitant]
  3. AVANDIA [Suspect]
     Indication: TYPE 2 DIABETES MELLITUS
     Dosage: 8MG PER DAY
     Route: 048
     Dates: start: 20020830, end: 20080414
  4. LISINOPRIL [Concomitant]

REACTIONS (6)
  - DEATH [None]
  - CEREBRAL INFARCTION [None]
  - CARDIAC FAILURE CONGESTIVE [None]
  - MYOCARDIAL INFARCTION [None]
  - EMBOLIC STROKE [None]
  - VISUAL ACUITY REDUCED [None]
